FAERS Safety Report 16708513 (Version 1)
Quarter: 2019Q3

REPORT INFORMATION
  Report Type: Spontaneous
  Country: DE (occurrence: DE)
  Receive Date: 20190816
  Receipt Date: 20190816
  Transmission Date: 20191004
  Serious: Yes (Other)
  Sender: FDA-Public Use
  Company Number: DE-ASTELLAS-2019US032411

PATIENT
  Age: 67 Year
  Sex: Male

DRUGS (1)
  1. XTANDI [Suspect]
     Active Substance: ENZALUTAMIDE
     Indication: PROSTATIC SPECIFIC ANTIGEN ABNORMAL
     Dosage: 160 MG, ONCE DAILY (4 DF OF 40 MG EACH)
     Route: 048

REACTIONS (3)
  - Product use in unapproved indication [Unknown]
  - Hot flush [Not Recovered/Not Resolved]
  - Visual impairment [Not Recovered/Not Resolved]
